FAERS Safety Report 8789031 (Version 2)
Quarter: 2013Q1

REPORT INFORMATION
  Report Type: Spontaneous
  Country: US (occurrence: US)
  Receive Date: 20120917
  Receipt Date: 20130131
  Transmission Date: 20140127
  Serious: Yes (Other)
  Sender: FDA-Public Use
  Company Number: US-009507513-1209USA003998

PATIENT
  Sex: Female

DRUGS (4)
  1. RIBAVIRIN [Suspect]
     Indication: HEPATITIS C
     Dosage: UNK
     Dates: start: 20040101, end: 20040301
  2. RIBAVIRIN [Suspect]
     Dosage: UNK
     Dates: start: 20120810
  3. PEGASYS [Suspect]
     Indication: HEPATITIS C
     Dosage: UNK
     Dates: start: 20040101, end: 20040301
  4. PEGASYS [Suspect]
     Dosage: UNK
     Dates: start: 20120810

REACTIONS (9)
  - Loss of consciousness [Unknown]
  - Pulmonary embolism [Unknown]
  - Injury [Unknown]
  - Gallbladder disorder [Unknown]
  - Pain [Unknown]
  - Angiopathy [Unknown]
  - Gallbladder disorder [Unknown]
  - Influenza like illness [Unknown]
  - Pain [Unknown]
